FAERS Safety Report 23852070 (Version 1)
Quarter: 2024Q2

REPORT INFORMATION
  Report Type: Report from Study
  Country: CA (occurrence: CA)
  Receive Date: 20240514
  Receipt Date: 20240514
  Transmission Date: 20240717
  Serious: Yes (Hospitalization)
  Sender: FDA-Public Use
  Company Number: CA-Merck Healthcare KGaA-2024017992

PATIENT
  Sex: Male

DRUGS (1)
  1. SAIZEN [Suspect]
     Active Substance: SOMATROPIN
     Indication: Product used for unknown indication
     Route: 058
     Dates: start: 20240217

REACTIONS (6)
  - Lymphadenopathy [Recovering/Resolving]
  - Intussusception [Recovering/Resolving]
  - Dehydration [Recovering/Resolving]
  - Viral infection [Recovering/Resolving]
  - Injection site urticaria [Unknown]
  - Wrong technique in product usage process [Unknown]
